FAERS Safety Report 8339270-6 (Version None)
Quarter: 2012Q2

REPORT INFORMATION
  Report Type: 
  Country: None (occurrence: None)
  Receive Date: 20120507
  Receipt Date: 20120425
  Transmission Date: 20120825
  Serious: Yes (Other)
  Sender: FDA-Public Use
  Company Number: BR-JNJFOC-20120401685

PATIENT
  Sex: Male
  Weight: 74 kg

DRUGS (3)
  1. FERROUS SULFATE TAB [Concomitant]
     Indication: ANAEMIA
     Route: 048
     Dates: start: 20120401
  2. VITAMIN B COMPLEX CAP [Concomitant]
     Indication: HYPOVITAMINOSIS
     Route: 065
  3. REMICADE [Suspect]
     Indication: CROHN'S DISEASE
     Route: 042
     Dates: start: 20100410

REACTIONS (14)
  - POST PROCEDURAL COMPLICATION [None]
  - MYALGIA [None]
  - ANAEMIA [None]
  - SURGERY [None]
  - DECREASED APPETITE [None]
  - INFLAMMATION [None]
  - HYPOVITAMINOSIS [None]
  - PAIN [None]
  - WEIGHT INCREASED [None]
  - HAEMORRHAGE [None]
  - NAUSEA [None]
  - BONE PAIN [None]
  - HYPOAESTHESIA [None]
  - PYREXIA [None]
